FAERS Safety Report 9109251 (Version 2)
Quarter: 2014Q2

REPORT INFORMATION
  Report Type: Report from Study
  Country: TW (occurrence: TW)
  Receive Date: 20130222
  Receipt Date: 20140417
  Transmission Date: 20141212
  Serious: Yes (Hospitalization, Other)
  Sender: FDA-Public Use
  Company Number: PHHY2012TW120184

PATIENT
  Age: 84 Year
  Sex: Female
  Weight: 45 kg

DRUGS (88)
  1. TIMEPIDIUM [Concomitant]
     Indication: ABDOMINAL PAIN UPPER
     Dates: start: 20121119, end: 20121126
  2. TRAMADOL [Concomitant]
     Indication: ABDOMINAL PAIN
     Dosage: UNK
     Dates: start: 20121104, end: 20121109
  3. ULTRACET [Concomitant]
     Indication: ABDOMINAL PAIN
     Dates: start: 20121107, end: 20121108
  4. ULTRACET [Concomitant]
     Indication: ABDOMINAL PAIN UPPER
     Dates: start: 20121121, end: 20121128
  5. ULTRACET [Concomitant]
     Dates: start: 20121112, end: 20121119
  6. URSODESOXYCHOLIC ACID [Concomitant]
     Indication: CHOLELITHIASIS
     Dosage: UNK
     Dates: start: 20121119, end: 20121203
  7. POLYTAR LIQUID [Concomitant]
     Indication: ECZEMA
     Dosage: UNK
     Dates: start: 20120118
  8. ISOSORB//ISOSORBIDE MONONITRATE [Concomitant]
     Dosage: UNK
     Dates: start: 20111221
  9. CELECOXIB [Concomitant]
     Indication: ABDOMINAL PAIN
     Dosage: UNK
     Dates: start: 20121104, end: 20121104
  10. CEFLEXIN [Concomitant]
     Indication: EYELID FUNCTION DISORDER
     Dosage: UNK
     Dates: start: 20120620, end: 20120623
  11. CEFLEXIN [Concomitant]
     Dosage: UNK
  12. SODIUM PHOSPHATE MONOBASIC [Concomitant]
     Indication: PREMEDICATION
     Dosage: UNK
     Dates: start: 20121107, end: 20121129
  13. AMN107 [Suspect]
     Indication: CHRONIC MYELOID LEUKAEMIA
     Dosage: 400 MG DAILY
     Route: 048
     Dates: start: 20110913
  14. FUROSEMIDE [Concomitant]
     Indication: PREMEDICATION
     Dosage: UNK
     Dates: start: 20120118, end: 20120118
  15. FUROSEMIDE [Concomitant]
     Dosage: UNK
     Dates: start: 20120411, end: 20120411
  16. FUROSEMIDE [Concomitant]
     Dosage: UNK
     Dates: start: 20120215, end: 20120215
  17. FUROSEMIDE [Concomitant]
     Dosage: UNK
     Dates: start: 20121009, end: 20121009
  18. FUROSEMIDE [Concomitant]
     Dosage: UNK
     Dates: start: 20120718, end: 20120718
  19. FUROSEMIDE [Concomitant]
     Dosage: UNK
     Dates: start: 20120530, end: 20120530
  20. FUROSEMIDE [Concomitant]
     Dosage: UNK
     Dates: start: 20130514, end: 20130514
  21. FUROSEMIDE [Concomitant]
     Dosage: UNK
     Dates: start: 20131004, end: 20131004
  22. FUROSEMIDE [Concomitant]
     Dosage: UNK
     Dates: start: 20130802, end: 20130802
  23. FUROSEMIDE [Concomitant]
     Dosage: UNK
     Dates: start: 20130130, end: 20130130
  24. SOLU CORTEF [Concomitant]
  25. NITROSTAT [Concomitant]
     Dosage: UNK
     Dates: start: 20130219
  26. ROSUVASTATIN [Concomitant]
     Dosage: UNK
     Dates: start: 20111221
  27. NORVASC [Concomitant]
     Dates: start: 20111211, end: 20111212
  28. NORVASC [Concomitant]
     Dates: start: 20111221
  29. VALSARTAN [Concomitant]
     Indication: PREMEDICATION
     Dosage: UNK
     Dates: start: 20111221
  30. VALSARTAN [Concomitant]
     Indication: HYPERTENSION
  31. BOKEY [Concomitant]
  32. CHLORPHENIRAMIN [Concomitant]
     Indication: PREMEDICATION
     Dates: start: 20120411, end: 20120411
  33. CHLORPHENIRAMIN [Concomitant]
     Indication: PROPHYLAXIS
     Dates: start: 20120215, end: 20120215
  34. CHLORPHENIRAMIN [Concomitant]
     Dates: start: 20111212, end: 20111212
  35. CHLORPHENIRAMIN [Concomitant]
     Dates: start: 20120118, end: 20120118
  36. CHLORPHENIRAMIN [Concomitant]
     Dosage: UNK
     Dates: start: 20121009, end: 20121009
  37. CHLORPHENIRAMIN [Concomitant]
     Dosage: UNK
     Dates: start: 20120718, end: 20120718
  38. CHLORPHENIRAMIN [Concomitant]
     Dosage: UNK
     Dates: start: 20120530, end: 20120530
  39. CHLORPHENIRAMIN [Concomitant]
     Dosage: UNK
     Dates: start: 20131004, end: 20131004
  40. CHLORPHENIRAMIN [Concomitant]
     Dosage: UNK
     Dates: start: 20130802, end: 20130802
  41. CHLORPHENIRAMIN [Concomitant]
     Dosage: UNK
     Dates: start: 20130514, end: 20130514
  42. CHLORPHENIRAMIN [Concomitant]
     Dosage: UNK
     Dates: start: 20130130, end: 20130130
  43. KCL [Concomitant]
     Indication: RENAL FAILURE CHRONIC
     Dosage: UNK
     Dates: start: 20121222, end: 20121223
  44. ACETAMINOPHEN [Concomitant]
     Indication: EYELID DISORDER
     Dates: start: 20120620, end: 20120623
  45. ACETAMINOPHEN [Concomitant]
     Indication: ABDOMINAL PAIN
     Dosage: UNK
     Dates: start: 20121223, end: 20121226
  46. ACTRAPID HM//INSULIN HUMAN [Concomitant]
     Indication: DIABETES MELLITUS
     Dosage: UNK
     Dates: start: 20121110, end: 20121111
  47. ACTRAPID HM//INSULIN HUMAN [Concomitant]
     Dosage: UNK
     Dates: start: 20121130, end: 20121202
  48. ALPRAZOLAM [Concomitant]
     Indication: ADJUSTMENT DISORDER
     Dosage: UNK
     Dates: start: 20111221
  49. AMINOL-RF [Concomitant]
     Indication: RENAL FAILURE CHRONIC
     Dosage: UNK
     Dates: start: 20121110, end: 20121111
  50. BETAMETHASONE [Concomitant]
     Indication: SEBORRHOEIC DERMATITIS
     Dosage: UNK
     Dates: start: 20120118
  51. BROWN MIXTURE                      /01682301/ [Concomitant]
     Indication: COUGH
     Dosage: UNK
     Dates: start: 20121202, end: 20121212
  52. BUSCOPAN [Concomitant]
     Indication: GASTROENTERITIS
     Dosage: UNK
     Dates: start: 20121223, end: 20121223
  53. CEFAZOLIN [Concomitant]
     Indication: HEPATITIS
     Dosage: UNK
     Dates: start: 20121109, end: 20121111
  54. CEFAZOLIN [Concomitant]
     Indication: PREMEDICATION
     Dosage: UNK
     Dates: start: 20121130, end: 20121130
  55. CILEX//CEFALEXIN [Concomitant]
     Indication: ABDOMINAL PAIN
     Dosage: UNK
     Dates: start: 20121104, end: 20121104
  56. CEPHALEXIN [Concomitant]
     Indication: GASTROOESOPHAGEAL REFLUX DISEASE
     Dosage: UNK
     Dates: start: 20121112, end: 20121119
  57. CLOPIDOGREL [Concomitant]
     Dates: start: 20111207, end: 20111212
  58. DIPHENHYDRAMINE [Concomitant]
     Indication: URTICARIA
     Dosage: UNK
     Dates: start: 20120118, end: 20120120
  59. DIPHENHYDRAMINE [Concomitant]
     Indication: PREMEDICATION
  60. DIPHENHYDRAMINE [Concomitant]
     Indication: TRANSFUSION
  61. FLUMETHOLON [Concomitant]
     Indication: CATARACT
     Dosage: UNK
     Dates: start: 20120514, end: 20120611
  62. GASCON [Concomitant]
     Indication: ABDOMINAL PAIN
     Dosage: UNK
     Dates: start: 20121103, end: 20121103
  63. GASCON [Concomitant]
     Dosage: UNK
     Dates: start: 20121119, end: 20121203
  64. GENTAMYCINE [Concomitant]
     Indication: EYELID DISORDER
     Dosage: UNK
     Dates: start: 20120620, end: 20120627
  65. ISOSORBIDE MONONITRATE [Concomitant]
     Indication: ANGINA PECTORIS
     Dosage: UNK
     Dates: start: 20111221
  66. ISOSORBIDE MONONITRATE [Concomitant]
     Indication: PROPHYLAXIS
  67. ISOSORBIDE DINITRATE [Concomitant]
     Indication: ANGINA PECTORIS
     Dosage: UNK
     Dates: start: 20111212, end: 20111212
  68. ISOSORBIDE DINITRATE [Concomitant]
     Indication: PROPHYLAXIS
  69. KAOPECTIN [Concomitant]
     Indication: GASTROENTERITIS
     Dosage: UNK
     Dates: start: 20121222, end: 20121226
  70. KINGMIN [Concomitant]
     Indication: DRY EYE
     Dosage: UNK
     Dates: start: 20120514, end: 20120611
  71. LABETALOL [Concomitant]
     Indication: HYPERTENSION
     Dosage: UNK
     Dates: start: 20121223, end: 20121223
  72. LANSOPRAZOLE [Concomitant]
     Indication: GASTROOESOPHAGEAL REFLUX DISEASE
     Dosage: UNK
     Dates: start: 20121106, end: 20121119
  73. LOPERAMIDE [Concomitant]
     Indication: GASTROENTERITIS
     Dosage: UNK
     Dates: start: 20121222, end: 20121222
  74. MAGNESIUM OXIDE [Concomitant]
     Indication: ABDOMINAL PAIN
     Dates: start: 20121103, end: 20121109
  75. MAGNESIUM OXIDE [Concomitant]
     Indication: ABDOMINAL PAIN UPPER
     Dates: start: 20121119, end: 20121212
  76. MEBEVERINE [Concomitant]
     Indication: GASTROENTERITIS
     Dosage: UNK
     Dates: start: 20121223, end: 20121226
  77. MIDAZOLAM [Concomitant]
     Indication: ABDOMINAL PAIN UPPER
     Dosage: UNK
     Dates: start: 20121109, end: 20121109
  78. NEOMYCIN [Concomitant]
     Indication: WOUND
     Dosage: UNK
     Dates: start: 20130226, end: 20130305
  79. NITROGLYCERIN [Concomitant]
     Indication: PROPHYLAXIS
     Dates: start: 20111207
  80. ORPHENADRINE [Concomitant]
     Indication: ADJUSTMENT DISORDER
     Dosage: UNK
     Dates: start: 20111221
  81. PANTOPRAZOLE [Concomitant]
     Indication: GASTROOESOPHAGEAL REFLUX DISEASE
     Dosage: UNK
     Dates: start: 20121119, end: 20121203
  82. PRIMPERAN [Concomitant]
     Indication: GASTROENTERITIS
     Dates: start: 20121103, end: 20121104
  83. PRIMPERAN [Concomitant]
     Indication: ABDOMINAL PAIN
     Dates: start: 20121222, end: 20121223
  84. RANITIDINE [Concomitant]
     Indication: ABDOMINAL PAIN
     Dosage: UNK
     Dates: start: 20121104, end: 20121104
  85. SENOKOT//SENNA ALEXANDRINA [Concomitant]
     Indication: CONSTIPATION
     Dates: start: 20121103, end: 20121103
  86. SENOKOT//SENNA ALEXANDRINA [Concomitant]
     Dates: start: 20121110, end: 20121119
  87. SENOKOT//SENNA ALEXANDRINA [Concomitant]
     Dates: start: 20121201, end: 20121212
  88. SUCRALFATE [Concomitant]
     Indication: GASTROOESOPHAGEAL REFLUX DISEASE
     Dosage: UNK
     Dates: start: 20121110, end: 20121110

REACTIONS (9)
  - Cholelithiasis [Recovering/Resolving]
  - Hepatitis acute [Unknown]
  - Aspartate aminotransferase increased [Unknown]
  - Alanine aminotransferase increased [Unknown]
  - Blood alkaline phosphatase increased [Unknown]
  - Abdominal pain upper [Unknown]
  - Pyrexia [Unknown]
  - Gastritis [Unknown]
  - Wound complication [Recovered/Resolved]
